FAERS Safety Report 20340635 (Version 2)
Quarter: 2022Q1

REPORT INFORMATION
  Report Type: Spontaneous
  Country: JP (occurrence: JP)
  Receive Date: 20220117
  Receipt Date: 20220128
  Transmission Date: 20220424
  Serious: Yes (Other)
  Sender: FDA-Public Use
  Company Number: JP-NOVARTISPH-NVSJ2022JP000906

PATIENT
  Age: 57 Year
  Sex: Female
  Weight: 62 kg

DRUGS (8)
  1. METFORMIN HYDROCHLORIDE\VILDAGLIPTIN [Suspect]
     Active Substance: METFORMIN HYDROCHLORIDE\VILDAGLIPTIN
     Indication: Type 2 diabetes mellitus
     Dosage: 1 DF:METFORMIN500MG/VILDAGLIPTIN50MG,BID(EVERYDAY, AT MORNING AND EVENING)
     Route: 048
     Dates: start: 20210721
  2. IMEGLIMIN [Suspect]
     Active Substance: IMEGLIMIN
     Indication: Diabetes mellitus
     Dosage: 500 MG, BID (EVERYDAY, AT MORNING AND EVENING)
     Route: 048
     Dates: start: 20211023, end: 20211110
  3. AMLODIPINE BESYLATE [Concomitant]
     Active Substance: AMLODIPINE BESYLATE
     Indication: Hypertension
     Dosage: 5 MG, QD (EVERYDAY)
     Route: 048
     Dates: start: 201705
  4. MICARDIS [Concomitant]
     Active Substance: TELMISARTAN
     Indication: Hypertension
     Dosage: 20 MG, QD (EVERYDAY)
     Route: 048
     Dates: start: 201708
  5. LIPIDIL [Concomitant]
     Active Substance: FENOFIBRATE
     Indication: Dyslipidaemia
     Dosage: 160 MG, QD (EVERYDAY)
     Route: 048
     Dates: start: 201710
  6. ZETIA [Concomitant]
     Active Substance: EZETIMIBE
     Indication: Hypercholesterolaemia
     Dosage: 10 MG, QD (EVERYDAY)
     Route: 048
     Dates: start: 201804
  7. LANSOPRAZOLE [Concomitant]
     Active Substance: LANSOPRAZOLE
     Indication: Gastritis
     Dosage: 15 MG, QD (EVERYDAY)
     Route: 048
     Dates: start: 201901
  8. LANSOPRAZOLE [Concomitant]
     Active Substance: LANSOPRAZOLE
     Indication: Oesophagitis

REACTIONS (2)
  - Diabetes mellitus inadequate control [Unknown]
  - Hepatic function abnormal [Recovered/Resolved]

NARRATIVE: CASE EVENT DATE: 20210922
